FAERS Safety Report 9179649 (Version 1)
Quarter: 2012Q4

REPORT INFORMATION
  Report Type: 
  Country: FR (occurrence: FR)
  Receive Date: 20121029
  Receipt Date: 20121029
  Transmission Date: 20130627
  Serious: Yes (Hospitalization)
  Sender: FDA-Public Use
  Company Number: FR-GLAXOSMITHKLINE-B0839856A

PATIENT
  Age: 92 None
  Sex: Female

DRUGS (6)
  1. ZELITREX [Suspect]
     Indication: PRODUCT USED FOR UNKNOWN INDICATION
     Dosage: 1000MG Three times per day
     Route: 048
     Dates: start: 20120917, end: 20120924
  2. TEGRETOL [Suspect]
     Indication: PRODUCT USED FOR UNKNOWN INDICATION
     Dosage: 200MG Twice per day
     Route: 048
     Dates: start: 20120919, end: 20120924
  3. IXPRIM [Suspect]
     Indication: PRODUCT USED FOR UNKNOWN INDICATION
     Dosage: 2TAB Four times per day
     Route: 048
     Dates: start: 20120917, end: 20120924
  4. COVERSYL [Concomitant]
  5. BEFIZAL [Concomitant]
  6. PLAVIX [Concomitant]

REACTIONS (7)
  - Confusional state [Recovered/Resolved]
  - Fall [Recovered/Resolved]
  - Face injury [Recovered/Resolved]
  - Periorbital haematoma [Recovered/Resolved]
  - Rhabdomyolysis [Recovered/Resolved]
  - Renal failure [Unknown]
  - Atrioventricular block first degree [None]
